FAERS Safety Report 16624703 (Version 4)
Quarter: 2020Q4

REPORT INFORMATION
  Report Type: Spontaneous
  Country: US (occurrence: US)
  Receive Date: 20190724
  Receipt Date: 20201029
  Transmission Date: 20210113
  Serious: Yes (Other)
  Sender: FDA-Public Use
  Company Number: US-PFIZER INC-2018278413

PATIENT
  Age: 72 Year
  Sex: Male
  Weight: 100 kg

DRUGS (4)
  1. LYRICA [Suspect]
     Active Substance: PREGABALIN
     Indication: NEUROPATHY PERIPHERAL
     Dosage: 150 MG, 2X/DAY (50MG 3 CAPSULES IN THE MORNING AND 3 CAPSULES IN THE EVENING)
  2. LYRICA [Suspect]
     Active Substance: PREGABALIN
     Dosage: 350 MG, DAILY(50 MG BY MOUTH 7 A DAY)
     Route: 048
     Dates: start: 2015
  3. LYRICA [Suspect]
     Active Substance: PREGABALIN
     Dosage: 450 MG, DAILY (50 MG; 3 IN THE MORNING, 1 IN AFTERNOON AND 3 AT NIGHT)
  4. LYRICA [Suspect]
     Active Substance: PREGABALIN
     Dosage: 350 MG, DAILY (3 CAPS IN AM AND 3 CAPS HE PLUS ONE CAP MIDDAY)
     Route: 048

REACTIONS (2)
  - Therapeutic product effect incomplete [Unknown]
  - Diabetes mellitus [Unknown]
